FAERS Safety Report 5115202-9 (Version None)
Quarter: 2006Q3

REPORT INFORMATION
  Report Type: 
  Country: None (occurrence: None)
  Receive Date: 20060926
  Receipt Date: 20060920
  Transmission Date: 20061208
  Serious: Yes (Hospitalization)
  Sender: FDA-Public Use
  Company Number: DE-BOEHRINGER INGELHEIM PHARMACEUTICALS, INC.-2006-DE-05048DE

PATIENT
  Sex: Male

DRUGS (6)
  1. ATROVENT [Suspect]
     Dosage: UNKNOWN AMOUNT
     Route: 055
  2. AMISULPRID [Suspect]
     Dosage: UNKNOWN AMOUNT
     Route: 048
  3. CARBAMAZEPINE [Suspect]
     Route: 048
  4. DIAZEPAM [Suspect]
     Route: 048
  5. TILIDIN [Suspect]
     Route: 048
  6. VENLAFAXINE HCL [Suspect]
     Route: 048

REACTIONS (4)
  - ALCOHOL USE [None]
  - DRUG ABUSER [None]
  - GAMMA-GLUTAMYLTRANSFERASE INCREASED [None]
  - SUICIDE ATTEMPT [None]
